FAERS Safety Report 7124341-2 (Version None)
Quarter: 2010Q4

REPORT INFORMATION
  Report Type: 
  Country: None (occurrence: None)
  Receive Date: 20101126
  Receipt Date: 20101119
  Transmission Date: 20110411
  Serious: Yes (Other)
  Sender: FDA-Public Use
  Company Number: PHHY2010IT79687

PATIENT
  Age: 25 Year
  Sex: Male

DRUGS (3)
  1. OXCARBAZEPINE [Suspect]
     Indication: EPILEPSY
     Dosage: 900 MG, DAILY
  2. STEROIDS NOS [Concomitant]
     Dosage: UNK
  3. RADIOTHERAPY [Concomitant]
     Dosage: UNK

REACTIONS (7)
  - ERYTHEMA MULTIFORME [None]
  - FURUNCLE [None]
  - MACULE [None]
  - PAPULE [None]
  - PYREXIA [None]
  - RASH [None]
  - RASH PRURITIC [None]
